FAERS Safety Report 8141929-0 (Version None)
Quarter: 2012Q1

REPORT INFORMATION
  Report Type: 
  Country: None (occurrence: None)
  Receive Date: 20120216
  Receipt Date: 20120210
  Transmission Date: 20120608
  Serious: Yes (Other)
  Sender: FDA-Public Use
  Company Number: BR-GLAXOSMITHKLINE-A0965938A

PATIENT
  Sex: Male

DRUGS (2)
  1. ALKERAN [Suspect]
     Indication: VASCULITIS
  2. MABTHERA [Concomitant]

REACTIONS (3)
  - NEUTROPENIA [None]
  - RESPIRATORY TRACT INFECTION [None]
  - ADVERSE EVENT [None]
